FAERS Safety Report 18707602 (Version 1)
Quarter: 2021Q1

REPORT INFORMATION
  Report Type: Spontaneous
  Country: US (occurrence: US)
  Receive Date: 20210106
  Receipt Date: 20210106
  Transmission Date: 20210419
  Serious: No
  Sender: FDA-Public Use
  Company Number: US-ELI_LILLY_AND_COMPANY-US202012005991

PATIENT
  Age: 23 Year

DRUGS (2)
  1. EMGALITY [Concomitant]
     Active Substance: GALCANEZUMAB-GNLM
     Indication: MIGRAINE
  2. REYVOW [Suspect]
     Active Substance: LASMIDITAN
     Indication: TRIGEMINAL NEURALGIA
     Dosage: 50 MG, UNKNOWN
     Route: 065

REACTIONS (1)
  - Arthralgia [Unknown]
